FAERS Safety Report 13588027 (Version 2)
Quarter: 2017Q2

REPORT INFORMATION
  Report Type: Spontaneous
  Country: US (occurrence: US)
  Receive Date: 20170527
  Receipt Date: 20170609
  Transmission Date: 20170830
  Serious: Yes (Life-Threatening, Hospitalization, Other)
  Sender: FDA-Public Use
  Company Number: US-AMGEN-USASP2017078054

PATIENT
  Age: 58 Year
  Sex: Female

DRUGS (1)
  1. PROLIA [Suspect]
     Active Substance: DENOSUMAB
     Indication: OSTEOPOROSIS
     Dosage: UNK, Q6MO
     Route: 058
     Dates: start: 20150520

REACTIONS (10)
  - Alopecia [Not Recovered/Not Resolved]
  - Pain in extremity [Unknown]
  - Colitis [Recovering/Resolving]
  - Pneumonia [Unknown]
  - Streptococcal bacteraemia [Recovering/Resolving]
  - Immune system disorder [Unknown]
  - Sepsis [Recovering/Resolving]
  - Lung infiltration [Recovering/Resolving]
  - Large intestine polyp [Recovering/Resolving]
  - Myalgia [Unknown]

NARRATIVE: CASE EVENT DATE: 20170109
